FAERS Safety Report 15372177 (Version 1)
Quarter: 2018Q3

REPORT INFORMATION
  Report Type: Spontaneous
  Country: FR (occurrence: FR)
  Receive Date: 20180911
  Receipt Date: 20180911
  Transmission Date: 20181010
  Serious: Yes (Hospitalization)
  Sender: FDA-Public Use
  Company Number: FR-SA-2018SA246137

PATIENT
  Age: 65 Year
  Sex: Female

DRUGS (6)
  1. NICARDIPINE [Suspect]
     Active Substance: NICARDIPINE
     Indication: HYPERTENSION
     Dosage: 50 MG, QD, IN THE MORNING
     Route: 048
  2. DULOXETINE HYDROCHLORIDE. [Suspect]
     Active Substance: DULOXETINE HYDROCHLORIDE
     Indication: DEPRESSION
     Dosage: 120 MG, BID, MORNING AND EVENING
     Route: 048
  3. PIASCLEDINE [PIAS] [Concomitant]
  4. COAPROVEL [Suspect]
     Active Substance: HYDROCHLOROTHIAZIDE\IRBESARTAN
     Indication: HYPERTENSION
     Dosage: LE MATIN
     Route: 048
     Dates: start: 2017, end: 20180725
  5. PRAZEPAM [Suspect]
     Active Substance: PRAZEPAM
     Indication: PSYCHIATRIC SYMPTOM
     Dosage: UNK, TID, 10MG MORNING, 5MG MIDI AND 10MG MORNING, 5MG MIDI 5MG EVENING
     Route: 048
  6. CARBAMAZEPINE. [Suspect]
     Active Substance: CARBAMAZEPINE
     Dosage: UNK, UNK, 400?0?200 MG/J
     Route: 048

REACTIONS (1)
  - Inappropriate antidiuretic hormone secretion [Recovering/Resolving]

NARRATIVE: CASE EVENT DATE: 20180724
